FAERS Safety Report 6587641-0 (Version None)
Quarter: 2010Q1

REPORT INFORMATION
  Report Type: 
  Country: None (occurrence: None)
  Receive Date: 20100218
  Receipt Date: 20100208
  Transmission Date: 20100710
  Serious: Yes (Life-Threatening, Other)
  Sender: FDA-Public Use
  Company Number: DE-ELI_LILLY_AND_COMPANY-DE201001006011

PATIENT
  Sex: Female

DRUGS (2)
  1. FORTEO [Suspect]
     Indication: OSTEOPOROSIS
     Dosage: UNK, UNKNOWN
     Route: 058
     Dates: start: 20080904, end: 20091101
  2. NOVALGIN [Concomitant]
     Indication: PAIN
     Dosage: 40, 4/D
     Route: 048
     Dates: start: 20080901, end: 20081001

REACTIONS (1)
  - ACUTE MYELOID LEUKAEMIA [None]
